FAERS Safety Report 14265288 (Version 1)
Quarter: 2017Q4

REPORT INFORMATION
  Report Type: Spontaneous
  Country: US (occurrence: US)
  Receive Date: 20171208
  Receipt Date: 20171208
  Transmission Date: 20180321
  Serious: No
  Sender: FDA-Public Use
  Company Number: US-GLAXOSMITHKLINE-US2017189181

PATIENT
  Age: 83 Year
  Sex: Male

DRUGS (1)
  1. ADVAIR DISKUS [Suspect]
     Active Substance: FLUTICASONE PROPIONATE\SALMETEROL XINAFOATE
     Indication: DYSPNOEA
     Dosage: 2 PUFF(S), BID
     Route: 055
     Dates: start: 20171128, end: 20171204

REACTIONS (4)
  - Dizziness [Unknown]
  - Product use in unapproved indication [Recovered/Resolved]
  - Vision blurred [Not Recovered/Not Resolved]
  - Overdose [Recovered/Resolved]

NARRATIVE: CASE EVENT DATE: 2017
